FAERS Safety Report 7648535-2 (Version None)
Quarter: 2011Q3

REPORT INFORMATION
  Report Type: 
  Country: None (occurrence: None)
  Receive Date: 20110801
  Receipt Date: 20110719
  Transmission Date: 20111222
  Serious: Yes (Hospitalization)
  Sender: FDA-Public Use
  Company Number: US-CELGENEUS-163-21880-11072225

PATIENT
  Sex: Female
  Weight: 57 kg

DRUGS (14)
  1. REVLIMID [Suspect]
     Dosage: 5 MILLIGRAM
     Route: 048
     Dates: start: 20110527
  2. CEFUROXIME [Concomitant]
     Route: 065
  3. HYDROXINE [Concomitant]
     Route: 065
  4. LIPITOR [Concomitant]
     Route: 065
  5. RANEXA [Concomitant]
     Route: 065
  6. LACTULOSE [Concomitant]
     Route: 065
  7. CARVEDILOL [Concomitant]
     Route: 065
  8. REVLIMID [Suspect]
     Indication: MULTIPLE MYELOMA
     Dosage: 5 MILLIGRAM
     Route: 048
     Dates: start: 20100801
  9. ALPRAZOLAM [Concomitant]
     Route: 065
  10. DIOVAN [Concomitant]
     Route: 065
  11. DAILY VITE [Concomitant]
     Route: 065
  12. RENVELA [Concomitant]
     Route: 065
  13. VICODIN [Concomitant]
     Route: 065
  14. AMLODIPINE [Concomitant]
     Route: 065

REACTIONS (4)
  - HEAD INJURY [None]
  - AMMONIA INCREASED [None]
  - DIARRHOEA [None]
  - FALL [None]
